FAERS Safety Report 10221041 (Version 1)
Quarter: 2014Q2

REPORT INFORMATION
  Report Type: Spontaneous
  Country: US (occurrence: None)
  Receive Date: 20140604
  Receipt Date: 20140604
  Transmission Date: 20141212
  Serious: Yes (Other)
  Sender: FDA-Public Use
  Company Number: 2014-US-006425

PATIENT
  Age: 39 Year
  Sex: Female

DRUGS (1)
  1. XYREM (SODIUM OXYBATE) ORAL SOLUTION, 500MG/ML [Suspect]
     Indication: NARCOLEPSY
     Route: 048
     Dates: start: 200311, end: 2003

REACTIONS (6)
  - Hysterectomy [None]
  - Gait disturbance [None]
  - Gastrooesophageal reflux disease [None]
  - Blood cholesterol increased [None]
  - Pelvic pain [None]
  - Dizziness [None]
